FAERS Safety Report 24322302 (Version 1)
Quarter: 2024Q3

REPORT INFORMATION
  Report Type: Spontaneous
  Country: GB (occurrence: GB)
  Receive Date: 20240916
  Receipt Date: 20240916
  Transmission Date: 20241017
  Serious: Yes (Hospitalization, Other)
  Sender: Haleon PLC
  Company Number: GB-GlaxoSmithKline-B0941456A

PATIENT
  Age: 75 Year

DRUGS (2)
  1. IBUPROFEN [Suspect]
     Active Substance: IBUPROFEN
     Indication: Product used for unknown indication
     Dosage: DOSAGE TEXT: TAKEN FOR SEVERAL YEARS  NUMBER OF SEPARATE DOSES: 2
     Route: 048
     Dates: end: 20131019
  2. IBUPROFEN [Suspect]
     Active Substance: IBUPROFEN
     Indication: Product used for unknown indication
     Dosage: DOSAGE TEXT:  NUMBER OF SEPARATE DOSES:
     Route: 061
     Dates: start: 20130913, end: 20131019

REACTIONS (2)
  - Duodenal ulcer [Recovering/Resolving]
  - Duodenal ulcer perforation [Recovering/Resolving]
